FAERS Safety Report 23406708 (Version 1)
Quarter: 2024Q1

REPORT INFORMATION
  Report Type: Spontaneous
  Country: US (occurrence: None)
  Receive Date: 20240115
  Receipt Date: 20240115
  Transmission Date: 20240410
  Serious: Yes (Death)
  Sender: FDA-Public Use
  Company Number: None

PATIENT
  Age: 95 Year
  Sex: Male

DRUGS (12)
  1. LOKELMA [Suspect]
     Active Substance: SODIUM ZIRCONIUM CYCLOSILICATE
     Indication: Product used for unknown indication
     Dosage: 10GM ORAL?? MIX 10 GRAMS WITH WATER AND DRINK PO 3 TIMES A WEEK
     Route: 048
     Dates: start: 20210603
  2. FERROUS SULFATE [Concomitant]
     Active Substance: FERROUS SULFATE
  3. VITAMIN B COMPLEX [Concomitant]
     Active Substance: CYANOCOBALAMIN\DEXPANTHENOL\NIACINAMIDE\PYRIDOXINE HYDROCHLORIDE\RIBOFLAVIN 5^-PHOSPHATE SODIUM\THIA
  4. VITAMIN C [Concomitant]
     Active Substance: ASCORBIC ACID
  5. VITAMIN D3 [Concomitant]
     Active Substance: CHOLECALCIFEROL
  6. BUMETANIDE [Concomitant]
     Active Substance: BUMETANIDE
  7. DOXAZOSIN [Concomitant]
     Active Substance: DOXAZOSIN MESYLATE
  8. FAMOTIDINE [Concomitant]
     Active Substance: FAMOTIDINE
  9. HYDRALAZINE [Concomitant]
     Active Substance: HYDRALAZINE HYDROCHLORIDE
  10. METOPROLOL SUCCINATE [Concomitant]
     Active Substance: METOPROLOL SUCCINATE
  11. PROCRIT [Concomitant]
     Active Substance: ERYTHROPOIETIN
  12. SIMVASTATIN [Concomitant]
     Active Substance: SIMVASTATIN

REACTIONS (1)
  - Death [None]
